FAERS Safety Report 12781226 (Version 1)
Quarter: 2016Q3

REPORT INFORMATION
  Report Type: Spontaneous
  Country: US (occurrence: US)
  Receive Date: 20160926
  Receipt Date: 20160926
  Transmission Date: 20161109
  Serious: Yes (Hospitalization, Other)
  Sender: FDA-Public Use
  Company Number: US-BAYER-2016-185600

PATIENT
  Age: 70 Year
  Sex: Male
  Weight: 71 kg

DRUGS (6)
  1. CELECOXIB. [Concomitant]
     Active Substance: CELECOXIB
     Indication: OSTEOARTHRITIS
     Dosage: UNK
     Route: 048
     Dates: start: 20140312, end: 20140314
  2. ALEVE [Suspect]
     Active Substance: NAPROXEN SODIUM
     Indication: OSTEOARTHRITIS
     Dosage: 375 MG, PRN
     Route: 048
     Dates: start: 201405, end: 20150721
  3. CELECOXIB. [Concomitant]
     Active Substance: CELECOXIB
     Indication: RHEUMATOID ARTHRITIS
  4. IBUPROFEN. [Concomitant]
     Active Substance: IBUPROFEN
     Indication: RHEUMATOID ARTHRITIS
  5. NEXIUM [Concomitant]
     Active Substance: ESOMEPRAZOLE MAGNESIUM
     Indication: PROPHYLAXIS
     Dosage: 20 MG, QD
     Route: 048
     Dates: start: 20140312, end: 20140314
  6. IBUPROFEN. [Concomitant]
     Active Substance: IBUPROFEN
     Indication: OSTEOARTHRITIS
     Dosage: UNK
     Route: 048
     Dates: start: 20140312, end: 20140314

REACTIONS (7)
  - Gastric ulcer haemorrhage [Recovered/Resolved]
  - Haematemesis [Unknown]
  - Gastrooesophageal reflux disease [Unknown]
  - Upper gastrointestinal haemorrhage [Recovered/Resolved]
  - Atrial fibrillation [None]
  - Hiatus hernia [None]
  - Asthenia [Unknown]

NARRATIVE: CASE EVENT DATE: 20150721
